FAERS Safety Report 8136437-7 (Version None)
Quarter: 2012Q1

REPORT INFORMATION
  Report Type: 
  Country: None (occurrence: None)
  Receive Date: 20120103
  Receipt Date: 20110823
  Transmission Date: 20120608
  Serious: No
  Sender: FDA-Public Use
  Company Number: AE-2011-001081

PATIENT
  Age: 49 Year
  Sex: Female
  Weight: 68.0396 kg

DRUGS (6)
  1. INCIVEK [Suspect]
     Dosage: 2250 MG (750 MG,3 IN 1 D), ORAL
     Route: 048
     Dates: start: 20110813
  2. PEGASYS [Concomitant]
  3. ACETAMINOPHEN [Concomitant]
  4. RIBAVIRIN [Concomitant]
  5. PAXIL [Concomitant]
  6. FLEXERIL [Concomitant]

REACTIONS (4)
  - ANAL PRURITUS [None]
  - PHOTOPHOBIA [None]
  - ANORECTAL DISCOMFORT [None]
  - MIGRAINE [None]
